FAERS Safety Report 10094121 (Version 1)
Quarter: 2014Q2

REPORT INFORMATION
  Report Type: Spontaneous
  Country: US (occurrence: US)
  Receive Date: 20140422
  Receipt Date: 20140422
  Transmission Date: 20141212
  Serious: No
  Sender: FDA-Public Use
  Company Number: US-009507513-1404USA010935

PATIENT
  Sex: 0

DRUGS (2)
  1. JANUVIA [Suspect]
     Route: 048
  2. METFORMIN [Suspect]

REACTIONS (1)
  - Drug intolerance [Unknown]
